FAERS Safety Report 18658024 (Version 1)
Quarter: 2020Q4

REPORT INFORMATION
  Report Type: Spontaneous
  Country: FR (occurrence: FR)
  Receive Date: 20201224
  Receipt Date: 20201224
  Transmission Date: 20210114
  Serious: Yes (Hospitalization)
  Sender: FDA-Public Use
  Company Number: FR-ACCORD-211928

PATIENT
  Age: 44 Year
  Sex: Female
  Weight: 78 kg

DRUGS (8)
  1. IRINOTECAN ACCORD [Suspect]
     Active Substance: IRINOTECAN
     Indication: ADENOCARCINOMA PANCREAS
     Dosage: STRENGTH:20 MG/ML
     Route: 041
     Dates: start: 20201118, end: 20201118
  2. ZOPHREN [Suspect]
     Active Substance: ONDANSETRON
     Indication: PROPHYLAXIS
     Dosage: STRENGH:8 MG
     Route: 048
     Dates: start: 20201118
  3. EMEND [Suspect]
     Active Substance: APREPITANT
     Indication: PROPHYLAXIS OF NAUSEA AND VOMITING
     Route: 048
     Dates: start: 20201118, end: 20201120
  4. METHYLPREDNISOLONE. [Concomitant]
     Active Substance: METHYLPREDNISOLONE
     Indication: PROPHYLAXIS
     Route: 041
     Dates: start: 20201118, end: 20201118
  5. CALCIUM LEVOFOLINATE [Concomitant]
     Active Substance: LEVOLEUCOVORIN CALCIUM
     Route: 041
     Dates: start: 20201118, end: 20201118
  6. FLUOROURACIL PFIZER [Suspect]
     Active Substance: FLUOROURACIL
     Indication: ADENOCARCINOMA PANCREAS
     Dosage: STRENGTH:50 MG/ML
     Route: 041
     Dates: start: 20201118, end: 20201118
  7. OXALIPLATIN ACCORD [Suspect]
     Active Substance: OXALIPLATIN
     Indication: ADENOCARCINOMA PANCREAS
     Dosage: STRENGTH:5 MG/ML
     Route: 041
     Dates: start: 20201118, end: 20201118
  8. GRANISETRON [Concomitant]
     Active Substance: GRANISETRON
     Indication: PROPHYLAXIS OF NAUSEA AND VOMITING
     Route: 041
     Dates: start: 20201118, end: 20201118

REACTIONS (3)
  - Dysarthria [Not Recovered/Not Resolved]
  - Dysphemia [Not Recovered/Not Resolved]
  - Off label use [Unknown]

NARRATIVE: CASE EVENT DATE: 20201119
